FAERS Safety Report 18661004 (Version 2)
Quarter: 2021Q2

REPORT INFORMATION
  Report Type: Spontaneous
  Country: ES (occurrence: ES)
  Receive Date: 20201224
  Receipt Date: 20210520
  Transmission Date: 20210717
  Serious: Yes (Hospitalization)
  Sender: FDA-Public Use
  Company Number: ES-PTC THERAPEUTICS, INC.-ES-2020PTC000802

PATIENT
  Age: 71 Year
  Sex: Male

DRUGS (2)
  1. DEFLAZACORT [Suspect]
     Active Substance: DEFLAZACORT
     Indication: PRODUCT USED FOR UNKNOWN INDICATION
     Dosage: UNK
     Route: 065
     Dates: start: 20200701, end: 2020
  2. BETAMETASONE [Suspect]
     Active Substance: BETAMETHASONE
     Indication: PRODUCT USED FOR UNKNOWN INDICATION
     Dosage: UNK
     Route: 065
     Dates: start: 20200701, end: 2020

REACTIONS (1)
  - Steroid diabetes [Not Recovered/Not Resolved]

NARRATIVE: CASE EVENT DATE: 20200908
